FAERS Safety Report 8906244 (Version 1)
Quarter: 2012Q4

REPORT INFORMATION
  Report Type: Spontaneous
  Country: US (occurrence: None)
  Receive Date: 20121112
  Receipt Date: 20121112
  Transmission Date: 20130627
  Serious: Yes (Life-Threatening, Other)
  Sender: FDA-Public Use
  Company Number: None

PATIENT
  Age: 54 Year
  Sex: Female
  Weight: 88.91 kg

DRUGS (1)
  1. OXYBUTYNIN [Suspect]
     Indication: URINARY URGENCY
     Dates: start: 20121012, end: 20121110

REACTIONS (6)
  - Vision blurred [None]
  - Weight increased [None]
  - Abdominal pain upper [None]
  - Flatulence [None]
  - Grand mal convulsion [None]
  - Somnolence [None]
